FAERS Safety Report 7997826-4 (Version None)
Quarter: 2011Q4

REPORT INFORMATION
  Report Type: 
  Country: None (occurrence: None)
  Receive Date: 20111221
  Receipt Date: 20110520
  Transmission Date: 20120403
  Serious: No
  Sender: FDA-Public Use
  Company Number: US-PFIZER INC-K201100638

PATIENT
  Age: 71 Year
  Sex: Female

DRUGS (1)
  1. CORGARD [Suspect]
     Dosage: UNK
     Route: 048
     Dates: end: 20110101

REACTIONS (1)
  - COUGH [None]
